FAERS Safety Report 14964119 (Version 2)
Quarter: 2018Q3

REPORT INFORMATION
  Report Type: Report from Study
  Country: US (occurrence: US)
  Receive Date: 20180601
  Receipt Date: 20180730
  Transmission Date: 20181010
  Serious: Yes (Other)
  Sender: FDA-Public Use
  Company Number: PHEH2018US021159

PATIENT
  Sex: Male

DRUGS (2)
  1. NEORAL [Suspect]
     Active Substance: CYCLOSPORINE
     Indication: LIVER TRANSPLANT
     Dosage: 125 MG, UNK
     Route: 048
  2. MYFORTIC [Suspect]
     Active Substance: MYCOPHENOLATE SODIUM
     Indication: LIVER TRANSPLANT
     Dosage: 180 MG, UNK
     Route: 048

REACTIONS (10)
  - Pain [Unknown]
  - Encephalopathy [Unknown]
  - Insomnia [Unknown]
  - Haemorrhage [Unknown]
  - Abdominal hernia [Unknown]
  - Liver transplant rejection [Unknown]
  - Memory impairment [Unknown]
  - Blood creatinine increased [Unknown]
  - Vomiting [Unknown]
  - Portal vein thrombosis [Unknown]
